FAERS Safety Report 9727545 (Version 2)
Quarter: 2013Q4

REPORT INFORMATION
  Report Type: Spontaneous
  Country: US (occurrence: US)
  Receive Date: 20131203
  Receipt Date: 20131203
  Transmission Date: 20140711
  Serious: Yes (Hospitalization)
  Sender: FDA-Public Use
  Company Number: US-BAXTER-2013BAX047214

PATIENT
  Age: 59 Year
  Sex: Female

DRUGS (9)
  1. DIANEAL LOW CALCIUM [Suspect]
     Indication: PERITONEAL DIALYSIS
     Route: 033
     Dates: start: 201306
  2. DIANEAL LOW CALCIUM [Suspect]
     Route: 033
     Dates: start: 201306
  3. DIANEAL LOW CALCIUM [Suspect]
     Indication: PERITONEAL DIALYSIS
     Route: 033
     Dates: start: 201306
  4. DIANEAL LOW CALCIUM [Suspect]
     Route: 033
     Dates: start: 201306
  5. MORPHINE SULFATE [Concomitant]
     Indication: NECK PAIN
     Route: 048
  6. MORPHINE SULFATE [Concomitant]
     Indication: BACK PAIN
  7. FLEXERIL [Concomitant]
     Indication: NECK PAIN
     Route: 048
  8. FLEXERIL [Concomitant]
     Indication: BACK PAIN
  9. MULTAQ [Concomitant]
     Indication: ATRIAL FIBRILLATION
     Route: 048

REACTIONS (2)
  - Haemoglobin decreased [Recovering/Resolving]
  - Fluid overload [Recovered/Resolved]
